FAERS Safety Report 5279967-8 (Version None)
Quarter: 2007Q1

REPORT INFORMATION
  Report Type: 
  Country: None (occurrence: None)
  Receive Date: 20070329
  Receipt Date: 20070323
  Transmission Date: 20070707
  Serious: Yes (Other)
  Sender: FDA-Public Use
  Company Number: HQWYE652123MAR07

PATIENT
  Age: 80 Year
  Sex: Female

DRUGS (2)
  1. CORDARONE [Suspect]
     Dosage: 150 MG DAILY ^DURING 10 DAYS AND STOP FOR 2 DAYS^
     Route: 048
  2. CORDARONE [Suspect]
     Route: 048

REACTIONS (3)
  - APATHY [None]
  - CONFUSIONAL STATE [None]
  - HYPERTHYROIDISM [None]
